FAERS Safety Report 6731354-9 (Version None)
Quarter: 2010Q2

REPORT INFORMATION
  Report Type: 
  Country: None (occurrence: None)
  Receive Date: 20100517
  Receipt Date: 20100517
  Transmission Date: 20101027
  Serious: No
  Sender: FDA-Public Use
  Company Number: None

PATIENT
  Age: 29 Year
  Sex: Female
  Weight: 68.0396 kg

DRUGS (1)
  1. PROPANOLOL 20 MG [Suspect]
     Dosage: 60 MG DAILY PO
     Route: 048

REACTIONS (2)
  - FALL [None]
  - HYPOTENSION [None]
